FAERS Safety Report 23292794 (Version 1)
Quarter: 2023Q4

REPORT INFORMATION
  Report Type: Spontaneous
  Country: US (occurrence: None)
  Receive Date: 20231212
  Receipt Date: 20231212
  Transmission Date: 20240109
  Serious: Yes (Life-Threatening, Hospitalization, Disabling)
  Sender: FDA-Public Use
  Company Number: None

PATIENT
  Age: 38 Year
  Sex: Male
  Weight: 129.6 kg

DRUGS (21)
  1. LEVETIRACETAM [Suspect]
     Active Substance: LEVETIRACETAM
     Indication: Seizure
     Dosage: OTHER QUANTITY : 1 TABLET(S);?FREQUENCY : TWICE A DAY;?
     Route: 048
     Dates: start: 20231110, end: 20231127
  2. FUROSEMIDE [Concomitant]
     Active Substance: FUROSEMIDE
  3. MAGNESIUM OXIDE [Concomitant]
     Active Substance: MAGNESIUM OXIDE
  4. LOSARTAN POTASSIUM [Concomitant]
     Active Substance: LOSARTAN POTASSIUM
  5. SPIRONOLACTONE [Concomitant]
     Active Substance: SPIRONOLACTONE
  6. XARELTO [Concomitant]
     Active Substance: RIVAROXABAN
  7. DULOXETINE [Concomitant]
     Active Substance: DULOXETINE
  8. TAMSULOSIN [Concomitant]
     Active Substance: TAMSULOSIN
  9. TOPIRAMATE [Concomitant]
     Active Substance: TOPIRAMATE
  10. Acetazolomide [Concomitant]
  11. LACOSAMIDE [Concomitant]
     Active Substance: LACOSAMIDE
  12. ATORVASTATIN [Concomitant]
     Active Substance: ATORVASTATIN
  13. Nertec [Concomitant]
  14. NITROGLYCERIN [Concomitant]
     Active Substance: NITROGLYCERIN
  15. Prochlorper [Concomitant]
  16. METFORMIN [Concomitant]
     Active Substance: METFORMIN HYDROCHLORIDE
  17. POTASSIUM CHLORIDE [Concomitant]
     Active Substance: POTASSIUM CHLORIDE
  18. HYDROXYZINE PAMOATE [Concomitant]
     Active Substance: HYDROXYZINE PAMOATE
  19. ONDANSETRON [Concomitant]
     Active Substance: ONDANSETRON
  20. MECLIZINE [Concomitant]
     Active Substance: MECLIZINE HYDROCHLORIDE
  21. Ventolin HFA AER GLAX [Concomitant]

REACTIONS (25)
  - Seizure [None]
  - Wheezing [None]
  - Chest discomfort [None]
  - Hallucination [None]
  - Dizziness [None]
  - Loss of consciousness [None]
  - Balance disorder [None]
  - Gait disturbance [None]
  - Suicidal ideation [None]
  - Depression [None]
  - Nervousness [None]
  - Restlessness [None]
  - Irritability [None]
  - Panic attack [None]
  - Mood altered [None]
  - Abnormal behaviour [None]
  - Ocular hyperaemia [None]
  - Abdominal pain upper [None]
  - Diarrhoea [None]
  - Eye irritation [None]
  - Dizziness [None]
  - Somnolence [None]
  - Fatigue [None]
  - Sleep disorder [None]
  - Decreased appetite [None]

NARRATIVE: CASE EVENT DATE: 20231110
